FAERS Safety Report 11690193 (Version 1)
Quarter: 2015Q4

REPORT INFORMATION
  Report Type: Spontaneous
  Country: AU (occurrence: AU)
  Receive Date: 20151102
  Receipt Date: 20151102
  Transmission Date: 20160304
  Serious: Yes (Hospitalization, Other)
  Sender: FDA-Public Use
  Company Number: AU-VIIV HEALTHCARE LIMITED-AU2015GSK033233

PATIENT
  Age: 36 Year
  Sex: Male

DRUGS (12)
  1. PRISTIQ EXTENDED RELEASE [Concomitant]
     Active Substance: DESVENLAFAXINE SUCCINATE
  2. TIVICAY [Interacting]
     Active Substance: DOLUTEGRAVIR SODIUM
     Dosage: UNK, QD
  3. TRUVADA [Suspect]
     Active Substance: EMTRICITABINE\TENOFOVIR DISOPROXIL FUMARATE
     Indication: HIV INFECTION
     Dosage: UNK
     Dates: start: 2006
  4. CARBAMAZEPINE. [Interacting]
     Active Substance: CARBAMAZEPINE
     Indication: PRODUCT USED FOR UNKNOWN INDICATION
  5. TIVICAY [Interacting]
     Active Substance: DOLUTEGRAVIR SODIUM
     Indication: HIV INFECTION
     Dosage: 50 MG, BID
  6. ATAZANAVIR [Suspect]
     Active Substance: ATAZANAVIR
     Indication: HIV INFECTION
     Dosage: UNK
     Dates: start: 2006
  7. NEVIRAPINE. [Suspect]
     Active Substance: NEVIRAPINE
     Indication: HIV INFECTION
     Dosage: UNK
     Dates: start: 2010
  8. QUETIAPINE [Concomitant]
     Active Substance: QUETIAPINE
  9. DARUNAVIR [Suspect]
     Active Substance: DARUNAVIR
     Indication: HIV INFECTION
     Dosage: 600 MG, BID
  10. RITONAVIR. [Suspect]
     Active Substance: RITONAVIR
     Indication: HIV INFECTION
     Dosage: UNK
     Dates: start: 2006
  11. RITONAVIR. [Suspect]
     Active Substance: RITONAVIR
     Dosage: 100 MG, BID
     Dates: start: 2010
  12. LAMIVUDINE. [Suspect]
     Active Substance: LAMIVUDINE
     Indication: HIV INFECTION

REACTIONS (16)
  - Fibrosis [Unknown]
  - Chest injury [Unknown]
  - Asthenia [Unknown]
  - Osteoporosis [Unknown]
  - Pancreatitis [Unknown]
  - Toxicity to various agents [Unknown]
  - Vitamin D deficiency [Unknown]
  - Stab wound [Unknown]
  - Suicidal ideation [Unknown]
  - Liver function test abnormal [Unknown]
  - Clumsiness [Unknown]
  - Ataxia [Unknown]
  - Diarrhoea [Unknown]
  - Intentional self-injury [Unknown]
  - Injury [Unknown]
  - Somnolence [Unknown]

NARRATIVE: CASE EVENT DATE: 2006
